FAERS Safety Report 4951190-3 (Version None)
Quarter: 2006Q1

REPORT INFORMATION
  Report Type: 
  Country: None (occurrence: None)
  Receive Date: 20060315
  Receipt Date: 20060224
  Transmission Date: 20060701
  Serious: Yes (Hospitalization)
  Sender: FDA-Public Use
  Company Number: FR200602005056

PATIENT
  Age: 67 Year
  Sex: Female

DRUGS (11)
  1. FORTEO [Suspect]
     Indication: OSTEOPOROSIS
     Dosage: 20 UG, DAILY (1/D), SUBCUTANEOUS
     Route: 058
     Dates: start: 20060107, end: 20060223
  2. FORTEO [Concomitant]
  3. RILUTEK [Concomitant]
  4. DANTRIUM [Concomitant]
  5. MORPHINE SULFATE [Concomitant]
  6. TOCOPHEROX [Concomitant]
  7. FLUOXETINE HCL [Concomitant]
  8. LANSOPRAZOLE [Concomitant]
  9. CLONAZEPAM [Concomitant]
  10. OSTRAM-VIT.D3(CALCIUM PHOSPHATE, COLECALCIFEROL) [Concomitant]
  11. HEXAQUINE (NIAOULI OIL, QUININE BENZOATE, THIAMINE HYDROCHLORIDE) [Concomitant]

REACTIONS (1)
  - PAIN IN EXTREMITY [None]
